FAERS Safety Report 5280331-6 (Version None)
Quarter: 2007Q1

REPORT INFORMATION
  Report Type: 
  Country: None (occurrence: None)
  Receive Date: 20070329
  Receipt Date: 20070316
  Transmission Date: 20070707
  Serious: Yes (Hospitalization, Other)
  Sender: FDA-Public Use
  Company Number: PHNU2006DE04162

PATIENT
  Sex: Male
  Weight: 172.7 kg

DRUGS (3)
  1. GLEEVEC [Suspect]
     Indication: CHRONIC MYELOID LEUKAEMIA
     Dosage: 400 MG, QD
     Route: 048
     Dates: start: 20051001, end: 20051201
  2. GLEEVEC [Suspect]
     Dosage: 800 MG/DAY
     Route: 048
     Dates: start: 20051201, end: 20060401
  3. GLEEVEC [Suspect]
     Dosage: 400 MG, QD
     Route: 048
     Dates: start: 20060401

REACTIONS (5)
  - ATRIAL HYPERTROPHY [None]
  - ECHOCARDIOGRAM ABNORMAL [None]
  - FLUID RETENTION [None]
  - OEDEMA [None]
  - WEIGHT INCREASED [None]
